FAERS Safety Report 10311061 (Version 1)
Quarter: 2014Q3

REPORT INFORMATION
  Report Type: Spontaneous
  Country: US (occurrence: US)
  Receive Date: 20140717
  Receipt Date: 20140717
  Transmission Date: 20150326
  Serious: No
  Sender: FDA-Public Use
  Company Number: US-009507513-1407USA006623

PATIENT
  Age: 64 Year
  Sex: Male
  Weight: 72.6 kg

DRUGS (2)
  1. VICTRELIS [Suspect]
     Active Substance: BOCEPREVIR
     Indication: HEPATITIS C
     Dosage: 4 CAPSULES EVERY 8 HOURS
     Route: 048
     Dates: start: 20111110
  2. REBETOL [Suspect]
     Active Substance: RIBAVIRIN
     Indication: HEPATITIS C
     Dosage: 2 CAPSULES EVERY 12 HOURS
     Route: 048
     Dates: start: 20111110

REACTIONS (2)
  - Anaemia [Unknown]
  - Leukopenia [Unknown]

NARRATIVE: CASE EVENT DATE: 20120410
